FAERS Safety Report 9296436 (Version 1)
Quarter: 2013Q2

REPORT INFORMATION
  Report Type: Report from Study
  Country: ZW (occurrence: ZW)
  Receive Date: 20130517
  Receipt Date: 20130517
  Transmission Date: 20140414
  Serious: Yes (Other)
  Sender: FDA-Public Use
  Company Number: ZW-ABBOTT-13P-190-1086454-00

PATIENT
  Age: 31 Year
  Sex: Female

DRUGS (3)
  1. ALUVIA [Suspect]
     Indication: HIV INFECTION
     Dosage: 400/100 MG
     Route: 048
     Dates: start: 20120806, end: 20130424
  2. LAMIVUDINE + ZIDOVUDINE [Concomitant]
     Indication: HIV INFECTION
     Dosage: 150/300 MG
     Route: 048
     Dates: start: 20100218, end: 20100319
  3. LAMIVUDINE + ZIDOVUDINE [Concomitant]
     Dosage: 150/300 MG
     Route: 048
     Dates: start: 20100429

REACTIONS (1)
  - Stillbirth [Unknown]
